FAERS Safety Report 9249556 (Version 1)
Quarter: 2013Q2

REPORT INFORMATION
  Report Type: Spontaneous
  Country: CH (occurrence: CH)
  Receive Date: 20130423
  Receipt Date: 20130423
  Transmission Date: 20140414
  Serious: Yes (Hospitalization)
  Sender: FDA-Public Use
  Company Number: CH-TEVA-399005ISR

PATIENT
  Age: 90 Year
  Sex: Male

DRUGS (12)
  1. COMILORID-MEPHA TABLETS [Suspect]
     Dosage: 1 DOSAGE FORMS DAILY; STRENGTH UNKNOWN
     Route: 048
     Dates: end: 201301
  2. PERINDOPRIL SANDOZ [Suspect]
     Dosage: .5 DOSAGE FORMS DAILY; STRENGTH UNKNOWN
     Route: 048
     Dates: end: 201301
  3. TORASEMID SANDOZ [Suspect]
     Dosage: 20 MILLIGRAM DAILY; TORASEMIDE 60 MG PER DAY (TORASEMIDE SANDOZ), REDUCED TO 20 MG (TOREM)
     Route: 048
  4. TORASEMID SANDOZ [Suspect]
     Dosage: 60 MILLIGRAM DAILY; TORASEMIDE 60 MG PER DAY (TORASEMIDE SANDOZ), REDUCED TO 20 MG (TOREM)
     Route: 048
  5. NITRODERM [Concomitant]
     Dosage: 1 DOSAGE FORMS DAILY;
     Route: 062
  6. METOPROLOL 25 MG TABLET [Concomitant]
     Dosage: 1.5 DOSAGE FORMS DAILY;
     Route: 048
  7. SIFROL 0.25 MG TABLETS [Concomitant]
     Dosage: 1 DOSAGE FORMS DAILY;
     Route: 048
  8. SERESTA [Concomitant]
     Dosage: 15 MILLIGRAM DAILY;
     Route: 048
  9. CYMBALTA 33.7 MG CAPSULES [Concomitant]
     Dosage: 1 DOSAGE FORMS DAILY;
     Route: 048
  10. PANTOPRAZOL [Concomitant]
     Dosage: 20 MILLIGRAM DAILY;
     Route: 048
  11. MAGNESIOCARD FILM-COATED TABLETS [Concomitant]
     Dosage: 10 MILLIMOL DAILY;
     Route: 048
  12. ASPIRIN CARDIO 100 MG FILM-COATED TABLETS [Concomitant]
     Dosage: 1 DOSAGE FORMS DAILY;
     Route: 048

REACTIONS (2)
  - Renal failure chronic [Recovered/Resolved]
  - Productive cough [None]
